FAERS Safety Report 8905868 (Version 2)
Quarter: 2012Q4

REPORT INFORMATION
  Report Type: 
  Country: US (occurrence: US)
  Receive Date: 20121113
  Receipt Date: 20121120
  Transmission Date: 20130627
  Serious: Yes (Hospitalization, Other)
  Sender: FDA-Public Use
  Company Number: US-BAXTER-2012BAX023342

PATIENT
  Sex: Male

DRUGS (3)
  1. DIANEAL LOW CALCIUM [Suspect]
     Indication: AUTOMATED PERITONEAL DIALYSIS
     Dosage: 12.5 LITERS
     Route: 033
     Dates: start: 20090901
  2. EXTRANEAL [Suspect]
     Indication: AUTOMATED PERITONEAL DIALYSIS
     Route: 033
     Dates: start: 20090901
  3. INSULIN [Concomitant]
     Indication: DIABETES
     Route: 065

REACTIONS (4)
  - Convulsion [Recovering/Resolving]
  - Hyperosmolar state [Recovering/Resolving]
  - Loss of consciousness [Recovered/Resolved]
  - Blood glucose increased [Unknown]
